FAERS Safety Report 4981726-8 (Version None)
Quarter: 2006Q2

REPORT INFORMATION
  Report Type: 
  Country: None (occurrence: None)
  Receive Date: 20060420
  Receipt Date: 20060420
  Transmission Date: 20061013
  Serious: Yes (Life-Threatening, Hospitalization)
  Sender: FDA-Public Use
  Company Number: None

PATIENT
  Age: 59 Year
  Sex: Male
  Weight: 98.4306 kg

DRUGS (3)
  1. GEMZAR [Suspect]
     Indication: PANCREATIC CARCINOMA
     Dosage: IV
     Route: 042
     Dates: start: 20060124, end: 20060301
  2. TARCEVA [Suspect]
     Indication: PANCREATIC CARCINOMA
     Dosage: PO    FROM 1/24/06 TO MID-MARCH
     Route: 048
     Dates: start: 20060124, end: 20060301
  3. LEVAQUIN [Concomitant]

REACTIONS (6)
  - CAPILLARY LEAK SYNDROME [None]
  - DYSPNOEA [None]
  - LUNG INFILTRATION [None]
  - OXYGEN SATURATION DECREASED [None]
  - PNEUMONITIS CHEMICAL [None]
  - RESPIRATORY FAILURE [None]
